FAERS Safety Report 4595205-3 (Version None)
Quarter: 2005Q1

REPORT INFORMATION
  Report Type: 
  Country: None (occurrence: None)
  Receive Date: 20050225
  Receipt Date: 20050106
  Transmission Date: 20050727
  Serious: Yes (Other)
  Sender: FDA-Public Use
  Company Number: 2005023574

PATIENT
  Sex: Male

DRUGS (4)
  1. CELEBREX (CELECOXIB) [Suspect]
     Indication: BACK PAIN
     Dosage: 400 MG (200 MG, 2 IN 1 D)
  2. ESOMEPRAZOLE 9ESOMEPRAZOLE) [Concomitant]
  3. ZALEPLON (ZALEPLON) [Concomitant]
  4. VENLAFAXINE HCL [Concomitant]

REACTIONS (1)
  - MYOCARDIAL INFARCTION [None]
